FAERS Safety Report 23039858 (Version 3)
Quarter: 2023Q4

REPORT INFORMATION
  Report Type: Report from Study
  Country: CA (occurrence: CA)
  Receive Date: 20231006
  Receipt Date: 20231115
  Transmission Date: 20240110
  Serious: Yes (Hospitalization, Other)
  Sender: FDA-Public Use
  Company Number: CA-002147023-NVSC2022CA109936

PATIENT
  Age: 74 Year
  Sex: Female

DRUGS (3)
  1. HYRIMOZ [Suspect]
     Active Substance: ADALIMUMAB-ADAZ
     Indication: Rheumatoid arthritis
     Dosage: 40 MG
     Route: 058
     Dates: start: 20220504
  2. HYRIMOZ [Suspect]
     Active Substance: ADALIMUMAB-ADAZ
     Dosage: 40 MG, Q2W
     Route: 058
  3. HYRIMOZ [Suspect]
     Active Substance: ADALIMUMAB-ADAZ
     Dosage: 40 MG
     Route: 058

REACTIONS (15)
  - Arthralgia [Recovered/Resolved]
  - Depression [Recovered/Resolved]
  - Flatulence [Recovered/Resolved]
  - Device difficult to use [Recovered/Resolved]
  - Hallucination [Recovered/Resolved]
  - Rheumatoid arthritis [Recovered/Resolved]
  - Wound [Unknown]
  - Heart rate increased [Unknown]
  - Hypertension [Unknown]
  - Wound infection [Recovered/Resolved]
  - Wound complication [Unknown]
  - Pain in extremity [Unknown]
  - Drug ineffective [Unknown]
  - Incorrect dose administered by device [Unknown]
  - Product dose omission issue [Unknown]

NARRATIVE: CASE EVENT DATE: 20230329
